FAERS Safety Report 22261897 (Version 2)
Quarter: 2025Q3

REPORT INFORMATION
  Report Type: Spontaneous
  Country: US (occurrence: US)
  Receive Date: 20230428
  Receipt Date: 20250730
  Transmission Date: 20251021
  Serious: Yes (Hospitalization, Other)
  Sender: QILU PHARMACEUTICAL
  Company Number: US-QILU PHARMACEUTICAL CO.LTD.-QLU-000043-2023

PATIENT
  Age: 65 Year
  Sex: Male

DRUGS (3)
  1. OLANZAPINE [Suspect]
     Active Substance: OLANZAPINE
     Indication: Decreased appetite
     Dosage: 5 MG PER DAY (NIGHTLY)
     Route: 048
  2. OLANZAPINE [Suspect]
     Active Substance: OLANZAPINE
     Indication: Sleep disorder
  3. DEXAMETHASONE [Suspect]
     Active Substance: DEXAMETHASONE
     Indication: Fatigue
     Dosage: 4 MG TWICE DAILY
     Route: 048

REACTIONS (15)
  - Hallucinations, mixed [Unknown]
  - Delirium [Unknown]
  - Joint stiffness [Unknown]
  - Muscle rigidity [Unknown]
  - Disorientation [Unknown]
  - Anaemia [Unknown]
  - Hyperammonaemia [Recovered/Resolved]
  - Hepatic encephalopathy [Unknown]
  - Dizziness [Unknown]
  - Urinary incontinence [Unknown]
  - Tremor [Unknown]
  - Lethargy [Unknown]
  - Blood alkaline phosphatase increased [Unknown]
  - Confusional state [Unknown]
  - Off label use [Recovered/Resolved]
